FAERS Safety Report 18948217 (Version 1)
Quarter: 2021Q1

REPORT INFORMATION
  Report Type: Spontaneous
  Country: BE (occurrence: BE)
  Receive Date: 20210226
  Receipt Date: 20210226
  Transmission Date: 20210420
  Serious: Yes (Other)
  Sender: FDA-Public Use
  Company Number: BE-SEATTLE GENETICS-2020SGN05249

PATIENT
  Age: 28 Year
  Sex: Female
  Weight: 45 kg

DRUGS (9)
  1. D?CURE [Concomitant]
     Active Substance: CHOLECALCIFEROL
     Dosage: UNK
     Route: 065
  2. AMOXICLAV [Concomitant]
     Active Substance: AMOXICILLIN\CLAVULANATE POTASSIUM
     Indication: PNEUMONIA
     Dosage: UNK, TID
     Route: 048
  3. ADCETRIS [Suspect]
     Active Substance: BRENTUXIMAB VEDOTIN
     Indication: HODGKIN^S DISEASE
     Dosage: 1.2 MILLIGRAM/KILOGRAM
     Route: 065
  4. DIFLUCAN [Concomitant]
     Active Substance: FLUCONAZOLE
     Indication: CANDIDA INFECTION
     Dosage: 200 MILLIGRAM, QD
     Route: 048
  5. SERETIDE [Concomitant]
     Active Substance: FLUTICASONE PROPIONATE\SALMETEROL XINAFOATE
     Indication: BRONCHIAL HYPERREACTIVITY
     Dosage: UNK UNK, BID
     Route: 055
  6. NOBITEN [NEBIVOLOL] [Concomitant]
     Indication: TACHYCARDIA
     Dosage: 2.5 MILLIGRAM, QD
     Route: 048
  7. PANTOMED [DEXPANTHENOL] [Concomitant]
     Indication: REFLUX GASTRITIS
     Dosage: 40 MILLIGRAM, BID
     Route: 048
  8. PANTOMED [DEXPANTHENOL] [Concomitant]
     Indication: PELVIC INFLAMMATORY DISEASE
  9. ARANESP [Concomitant]
     Active Substance: DARBEPOETIN ALFA
     Indication: NEPHROGENIC ANAEMIA
     Dosage: 300 MILLIGRAM, MONTHLY
     Route: 058

REACTIONS (7)
  - Respiratory disorder [Unknown]
  - Weight decreased [Unknown]
  - Pneumonitis [Unknown]
  - Cardiomyopathy [Unknown]
  - Off label use [Unknown]
  - Cough [Unknown]
  - Mitral valve incompetence [Unknown]

NARRATIVE: CASE EVENT DATE: 20210210
